FAERS Safety Report 9044124 (Version 1)
Quarter: 2013Q1

REPORT INFORMATION
  Report Type: Report from Study
  Country: US (occurrence: US)
  Receive Date: 20130130
  Receipt Date: 20130130
  Transmission Date: 20140127
  Serious: No
  Sender: FDA-Public Use
  Company Number: US-ABBOTT-12P-163-0954143-00

PATIENT
  Age: 63 Year
  Sex: Female

DRUGS (7)
  1. HUMIRA 40 MG/0.8 ML PEN [Suspect]
     Indication: RHEUMATOID ARTHRITIS
     Dates: start: 201203
  2. LEFLUNOMIDE [Concomitant]
     Indication: RHEUMATOID ARTHRITIS
  3. LEVOTHYROXINE [Concomitant]
     Indication: THYROID DISORDER
  4. BENAZEPRIL [Concomitant]
     Indication: BLOOD PRESSURE
  5. IBUPROFEN [Concomitant]
     Indication: ARTHRALGIA
  6. CYCLOBENZAPRINE [Concomitant]
     Indication: MUSCLE SPASMS
  7. ALENDRONATE [Concomitant]
     Indication: OSTEOPENIA

REACTIONS (2)
  - Incorrect dose administered [Recovered/Resolved]
  - Injection site pain [Recovered/Resolved]
